FAERS Safety Report 21477181 (Version 1)
Quarter: 2022Q4

REPORT INFORMATION
  Report Type: Spontaneous
  Country: DE (occurrence: DE)
  Receive Date: 20221019
  Receipt Date: 20221019
  Transmission Date: 20230112
  Serious: Yes (Other)
  Sender: FDA-Public Use
  Company Number: DE-TEVA-2022-DE-2816164

PATIENT
  Age: 35 Year
  Sex: Female

DRUGS (2)
  1. COPAXONE [Suspect]
     Active Substance: GLATIRAMER ACETATE
     Indication: Product used for unknown indication
     Route: 065
     Dates: start: 20220411
  2. SODIUM PROPIONATE [Concomitant]
     Active Substance: SODIUM PROPIONATE
     Indication: Product used for unknown indication
     Dosage: FREQUENCY: 2 TABLETS DAILY
     Route: 065

REACTIONS (2)
  - Clostridium test positive [Unknown]
  - Bile output abnormal [Unknown]

NARRATIVE: CASE EVENT DATE: 20220101
